FAERS Safety Report 5314606-9 (Version None)
Quarter: 2007Q2

REPORT INFORMATION
  Report Type: 
  Country: None (occurrence: None)
  Receive Date: 20070427
  Receipt Date: 20040413
  Transmission Date: 20071010
  Serious: Yes (Hospitalization)
  Sender: FDA-Public Use
  Company Number: SPV1-2007-01702

PATIENT
  Age: 24 Year
  Sex: Female

DRUGS (1)
  1. PENTASA [Suspect]
     Indication: CROHN'S DISEASE
     Dosage: 750 MG 3X'S DAILY; ORAL
     Route: 048
     Dates: start: 20070205, end: 20070227

REACTIONS (6)
  - BEHCET'S SYNDROME [None]
  - BLAST CELLS [None]
  - CROHN'S DISEASE [None]
  - NO THERAPEUTIC RESPONSE [None]
  - PANCREATITIS ACUTE [None]
  - PANCREATITIS NECROTISING [None]
